FAERS Safety Report 7199190-X (Version None)
Quarter: 2010Q4

REPORT INFORMATION
  Report Type: 
  Country: None (occurrence: None)
  Receive Date: 20101215
  Receipt Date: 20101203
  Transmission Date: 20110411
  Serious: Yes (Other)
  Sender: FDA-Public Use
  Company Number: 2010SP063404

PATIENT
  Age: 46 Year
  Sex: Female

DRUGS (3)
  1. CLARITIN [Suspect]
     Indication: HYPERSENSITIVITY
     Dosage: QAM;PO
     Route: 048
  2. CLARITIN [Suspect]
     Indication: NASOPHARYNGITIS
     Dosage: QAM;PO
     Route: 048
  3. CLARITIN [Suspect]
     Indication: OROPHARYNGEAL PAIN
     Dosage: QAM;PO
     Route: 048

REACTIONS (2)
  - EAR PAIN [None]
  - HYPOTENSION [None]
